FAERS Safety Report 21565719 (Version 1)
Quarter: 2022Q4

REPORT INFORMATION
  Report Type: Spontaneous
  Country: CA (occurrence: CA)
  Receive Date: 20221108
  Receipt Date: 20221108
  Transmission Date: 20230113
  Serious: Yes (Other)
  Sender: FDA-Public Use
  Company Number: None

PATIENT
  Age: 34 Year
  Sex: Female

DRUGS (2)
  1. METHOTREXATE [Suspect]
     Active Substance: METHOTREXATE
     Indication: Product used for unknown indication
     Dosage: 1 EVERY 1 WEEKS
     Route: 058
  2. PREDNISONE [Concomitant]
     Active Substance: PREDNISONE

REACTIONS (9)
  - Arrhythmia [Unknown]
  - Arthralgia [Unknown]
  - Dyspnoea [Unknown]
  - Hepatic mass [Unknown]
  - Loss of consciousness [Unknown]
  - Lung infiltration [Unknown]
  - Metabolic disorder [Unknown]
  - Nodule [Unknown]
  - Treatment failure [Unknown]
